FAERS Safety Report 9642279 (Version 2)
Quarter: 2013Q4

REPORT INFORMATION
  Report Type: Spontaneous
  Country: PL (occurrence: PL)
  Receive Date: 20131024
  Receipt Date: 20131126
  Transmission Date: 20140711
  Serious: Yes (Hospitalization)
  Sender: FDA-Public Use
  Company Number: PL-BIOGENIDEC-2013BI100242

PATIENT
  Age: 30 Year
  Sex: Male

DRUGS (6)
  1. TYSABRI [Suspect]
     Indication: MULTIPLE SCLEROSIS
     Route: 042
     Dates: start: 20131008
  2. TYSABRI [Suspect]
     Indication: MULTIPLE SCLEROSIS
     Route: 042
     Dates: start: 20130911
  3. TYSABRI [Suspect]
     Indication: MULTIPLE SCLEROSIS
     Route: 042
     Dates: start: 20131108
  4. EFECTIN ER [Concomitant]
  5. RISPOLEPT [Concomitant]
  6. BACLOFEN [Concomitant]

REACTIONS (5)
  - Convulsion [Unknown]
  - Epilepsy [Unknown]
  - Muscle spasticity [Unknown]
  - Infection [Unknown]
  - Bronchitis [Unknown]
